FAERS Safety Report 6992533-9 (Version None)
Quarter: 2010Q3

REPORT INFORMATION
  Report Type: 
  Country: None (occurrence: None)
  Receive Date: 20100915
  Receipt Date: 20100831
  Transmission Date: 20110219
  Serious: Yes (Other)
  Sender: FDA-Public Use
  Company Number: AUR-APL-2010-02241

PATIENT
  Age: 9 Year
  Sex: Female

DRUGS (5)
  1. ONDANSETRON [Suspect]
  2. VINCRISTINE SULFATE [Suspect]
  3. DOXORUBICIN HCL [Suspect]
  4. APREPITANT [Suspect]
  5. COSMEGEN [Suspect]

REACTIONS (1)
  - FEBRILE NEUTROPENIA [None]
